FAERS Safety Report 5628088-0 (Version None)
Quarter: 2008Q1

REPORT INFORMATION
  Report Type: 
  Country: None (occurrence: None)
  Receive Date: 20080215
  Receipt Date: 20070807
  Transmission Date: 20080703
  Serious: Yes (Hospitalization, Other)
  Sender: FDA-Public Use
  Company Number: PH-ASTRAZENECA-2007AP04788

PATIENT
  Age: 18091 Day
  Sex: Male

DRUGS (16)
  1. CLOPIDOGREL [Suspect]
     Indication: ACUTE CORONARY SYNDROME
     Dates: start: 20070704, end: 20070707
  2. CLOPIDOGREL [Suspect]
     Dates: start: 20070709
  3. METOPROLOL TARTRATE [Suspect]
     Dates: start: 20070703, end: 20070706
  4. PLAVIX [Concomitant]
     Dates: start: 20070703, end: 20070703
  5. ASPIRIN [Concomitant]
     Dates: start: 20070703
  6. LACTULOSE [Concomitant]
     Dates: start: 20070703, end: 20070706
  7. DIAZEPAM [Concomitant]
     Dates: start: 20070703, end: 20070705
  8. SOLOSA [Concomitant]
     Dates: start: 20070706, end: 20070710
  9. ISOSORBIDE DINITRATE [Concomitant]
     Dates: start: 20070703, end: 20070704
  10. CAPTOPRIL [Concomitant]
     Dates: start: 20070703, end: 20070705
  11. FUROSEMIDE [Concomitant]
     Dates: start: 20070703, end: 20070705
  12. ISOSORBIDE MONONITRATE [Concomitant]
     Dates: start: 20070606, end: 20070706
  13. ENALAPRIL MALEATE [Concomitant]
     Dates: start: 20070704, end: 20070706
  14. ATORVASTATIN CALCIUM [Concomitant]
     Dates: start: 20070703, end: 20070709
  15. ALDACTONE [Concomitant]
     Dates: start: 20070703
  16. CLEXANE [Concomitant]
     Dates: start: 20070703, end: 20070706

REACTIONS (3)
  - ATRIOVENTRICULAR BLOCK COMPLETE [None]
  - BRADYCARDIA [None]
  - HYPOTENSION [None]
